FAERS Safety Report 8578030-8 (Version None)
Quarter: 2012Q3

REPORT INFORMATION
  Report Type: 
  Country: None (occurrence: None)
  Receive Date: 20120726
  Receipt Date: 20120706
  Transmission Date: 20120928
  Serious: Yes (Other)
  Sender: FDA-Public Use
  Company Number: TCI2012A02150

PATIENT
  Age: 93 Year
  Sex: Female

DRUGS (6)
  1. ROZEREM [Suspect]
     Indication: CIRCADIAN RHYTHM SLEEP DISORDER
     Dosage: 8 MG (8 MF, 1 IN 1 D), PER ORAL
     Route: 048
     Dates: start: 20120313, end: 20120417
  2. ZYRTEC [Concomitant]
  3. MARZULENE S (LEVOGLUTAMIDE, SODIUM GUALENATE) [Concomitant]
  4. AMOBAN (ZOPICLONE) [Concomitant]
  5. FORSENID (SENNOSIDE A+B CALCIUM) [Concomitant]
  6. MAGNESIUM OXIDE [Concomitant]

REACTIONS (4)
  - LACK OF SPONTANEOUS SPEECH [None]
  - HYPORESPONSIVE TO STIMULI [None]
  - DEPRESSED LEVEL OF CONSCIOUSNESS [None]
  - HYPERKALAEMIA [None]
